FAERS Safety Report 25960750 (Version 1)
Quarter: 2025Q4

REPORT INFORMATION
  Report Type: Spontaneous
  Country: EU (occurrence: EU)
  Receive Date: 20251027
  Receipt Date: 20251027
  Transmission Date: 20260118
  Serious: Yes (Death, Hospitalization, Other)
  Sender: ALEXION PHARMACEUTICALS
  Company Number: EU-AstraZeneca-CH-00954065A

PATIENT
  Age: 85 Year
  Sex: Male
  Weight: 78 kg

DRUGS (10)
  1. DAPAGLIFLOZIN [Suspect]
     Active Substance: DAPAGLIFLOZIN
     Indication: Cardiac failure
     Dosage: 10 MILLIGRAM, QD
     Dates: start: 20250417
  2. DAPAGLIFLOZIN [Suspect]
     Active Substance: DAPAGLIFLOZIN
     Dosage: UNK
  3. XARELTO [Concomitant]
     Active Substance: RIVAROXABAN
  4. FUROSEMIDE [Concomitant]
     Active Substance: FUROSEMIDE
  5. BISOPROLOL [Concomitant]
     Active Substance: BISOPROLOL
  6. ENTRESTO [Concomitant]
     Active Substance: SACUBITRIL\VALSARTAN
  7. ALDACTONE [Concomitant]
     Active Substance: SPIRONOLACTONE
  8. KEPPRA [Concomitant]
     Active Substance: LEVETIRACETAM
  9. LEVOTHYROXINE [Concomitant]
     Active Substance: LEVOTHYROXINE
  10. INSULIN ASPART [Concomitant]
     Active Substance: INSULIN ASPART

REACTIONS (3)
  - Fournier^s gangrene [Fatal]
  - Off label use [Unknown]
  - Cardiac failure [Unknown]

NARRATIVE: CASE EVENT DATE: 20250615
